FAERS Safety Report 24677182 (Version 1)
Quarter: 2024Q4

REPORT INFORMATION
  Report Type: Report from Study
  Country: CZ (occurrence: CZ)
  Receive Date: 20241129
  Receipt Date: 20241129
  Transmission Date: 20250114
  Serious: Yes (Death)
  Sender: ABBVIE
  Company Number: CZ-ABBVIE-6024854

PATIENT
  Age: 70 Year
  Sex: Male

DRUGS (1)
  1. RINVOQ [Suspect]
     Active Substance: UPADACITINIB
     Indication: Psoriatic arthropathy
     Route: 048
     Dates: end: 20240925

REACTIONS (1)
  - COVID-19 [Fatal]

NARRATIVE: CASE EVENT DATE: 20241003
